FAERS Safety Report 5245159-1 (Version None)
Quarter: 2007Q1

REPORT INFORMATION
  Report Type: 
  Country: None (occurrence: None)
  Receive Date: 20070223
  Receipt Date: 20070212
  Transmission Date: 20070707
  Serious: Yes (Other)
  Sender: FDA-Public Use
  Company Number: PHEH2006US06798

PATIENT
  Age: 63 Year
  Sex: Male

DRUGS (3)
  1. AREDIA [Suspect]
     Indication: METASTASES TO BONE
     Dosage: 90 MG, QMO
     Dates: start: 19970724, end: 20020417
  2. ZOMETA [Suspect]
     Indication: METASTASES TO BONE
     Dosage: 4 MG MONTHLY THEN Q5 WEEKS
     Dates: start: 20020625, end: 20040517
  3. CHEMOTHERAPEUTICS,OTHER [Concomitant]

REACTIONS (35)
  - ABSCESS MANAGEMENT [None]
  - ALVEOLAR OSTEITIS [None]
  - ANHEDONIA [None]
  - BONE DISORDER [None]
  - BONE FISTULA [None]
  - BONE FRAGMENTATION [None]
  - BONE LESION [None]
  - CARPAL TUNNEL SYNDROME [None]
  - DECREASED INTEREST [None]
  - DEPRESSION [None]
  - EDENTULOUS [None]
  - EMOTIONAL DISTRESS [None]
  - ENDODONTIC PROCEDURE [None]
  - GINGIVAL ABSCESS [None]
  - GINGIVAL INFECTION [None]
  - GINGIVAL OEDEMA [None]
  - GINGIVAL PAIN [None]
  - GINGIVITIS [None]
  - HYPERPLASIA [None]
  - IMPAIRED HEALING [None]
  - INTERVERTEBRAL DISC DEGENERATION [None]
  - INTERVERTEBRAL DISC DISORDER [None]
  - LUMBAR SPINAL STENOSIS [None]
  - LYMPHADENOPATHY [None]
  - MULTIPLE MYELOMA [None]
  - OSTEITIS [None]
  - OSTEONECROSIS [None]
  - OSTEOPOROSIS [None]
  - PAIN [None]
  - PHYSICAL DISABILITY [None]
  - POLYNEUROPATHY [None]
  - SENSITIVITY OF TEETH [None]
  - SPINAL COLUMN STENOSIS [None]
  - SPINAL OSTEOARTHRITIS [None]
  - TOOTH EXTRACTION [None]
